FAERS Safety Report 14279626 (Version 6)
Quarter: 2022Q2

REPORT INFORMATION
  Report Type: Spontaneous
  Country: IT (occurrence: IT)
  Receive Date: 20171212
  Receipt Date: 20220427
  Transmission Date: 20220721
  Serious: Yes (Life-Threatening, Hospitalization, Disabling, Congenital Anomaly, Other)
  Sender: FDA-Public Use
  Company Number: None

PATIENT
  Age: 33 Week
  Sex: Female
  Weight: 1 kg

DRUGS (10)
  1. NIMESULIDE [Suspect]
     Active Substance: NIMESULIDE
     Indication: Neuritis
     Route: 064
  2. NIMESULIDE [Suspect]
     Active Substance: NIMESULIDE
     Indication: Sciatica
     Route: 064
  3. NIMESULIDE [Suspect]
     Active Substance: NIMESULIDE
     Indication: Product used for unknown indication
  4. NIMESULIDE [Suspect]
     Active Substance: NIMESULIDE
     Indication: Product used for unknown indication
  5. ACETAMINOPHEN [Suspect]
     Active Substance: ACETAMINOPHEN
     Indication: Neuritis
     Route: 065
  6. ACETAMINOPHEN [Suspect]
     Active Substance: ACETAMINOPHEN
     Indication: Sciatica
     Route: 064
  7. ACETAMINOPHEN [Suspect]
     Active Substance: ACETAMINOPHEN
     Indication: Product used for unknown indication
  8. DICLOFENAC [Suspect]
     Active Substance: DICLOFENAC
     Indication: Neuritis
     Route: 064
  9. DICLOFENAC [Suspect]
     Active Substance: DICLOFENAC
     Indication: Sciatica
  10. DICLOFENAC [Suspect]
     Active Substance: DICLOFENAC
     Indication: Product used for unknown indication

REACTIONS (22)
  - Neonatal respiratory distress syndrome [Recovered/Resolved]
  - Overdose [Unknown]
  - Ductus arteriosus premature closure [Recovered/Resolved]
  - Foetal exposure during pregnancy [Unknown]
  - Renal failure [Unknown]
  - Bradycardia [Unknown]
  - Cyanosis [Unknown]
  - Foetal exposure during pregnancy [Unknown]
  - Neonatal respiratory acidosis [Recovered/Resolved]
  - Premature delivery [Unknown]
  - Oligohydramnios [Unknown]
  - Maternal exposure during pregnancy [Recovered/Resolved]
  - Product use issue [Unknown]
  - Maternal exposure during pregnancy [Recovered/Resolved]
  - Oligohydramnios [Unknown]
  - Neonatal respiratory acidosis [Unknown]
  - Bradycardia neonatal [Recovered/Resolved]
  - Ductus arteriosus stenosis foetal [Unknown]
  - Renal failure neonatal [Recovered/Resolved]
  - Cyanosis neonatal [Recovered/Resolved]
  - Premature baby [Unknown]
  - Polyuria [Unknown]
